FAERS Safety Report 24335334 (Version 1)
Quarter: 2024Q3

REPORT INFORMATION
  Report Type: Spontaneous
  Country: US (occurrence: US)
  Receive Date: 20240918
  Receipt Date: 20240918
  Transmission Date: 20241017
  Serious: No
  Sender: BRISTOL MYERS SQUIBB
  Company Number: US-BRISTOL-MYERS SQUIBB COMPANY-2024-146019

PATIENT
  Age: 81 Year
  Sex: Female
  Weight: 90.26 kg

DRUGS (1)
  1. ELIQUIS [Suspect]
     Active Substance: APIXABAN
     Indication: Atrial fibrillation
     Route: 048

REACTIONS (4)
  - Expired product administered [Unknown]
  - Treatment noncompliance [Unknown]
  - Expired product administered [Unknown]
  - Product dispensing error [Unknown]
